FAERS Safety Report 5980337-5 (Version None)
Quarter: 2008Q4

REPORT INFORMATION
  Report Type: 
  Country: None (occurrence: None)
  Receive Date: 20081205
  Receipt Date: 20081129
  Transmission Date: 20090506
  Serious: Yes (Other)
  Sender: FDA-Public Use
  Company Number: US-AMGEN-QUU320194

PATIENT
  Sex: Female

DRUGS (2)
  1. NEUPOGEN [Suspect]
     Indication: NEUTROPENIA
     Dates: start: 20000101
  2. EPOGEN [Suspect]
     Indication: DRUG USE FOR UNKNOWN INDICATION
     Dates: start: 20000101, end: 20020101

REACTIONS (6)
  - HEART RATE IRREGULAR [None]
  - HEPATOMEGALY [None]
  - HYPERHIDROSIS [None]
  - LIVER DISORDER [None]
  - SKIN ULCER [None]
  - WEIGHT INCREASED [None]
